FAERS Safety Report 20025803 (Version 2)
Quarter: 2021Q4

REPORT INFORMATION
  Report Type: Report from Study
  Country: DE (occurrence: DE)
  Receive Date: 20211102
  Receipt Date: 20211110
  Transmission Date: 20220304
  Serious: Yes (Hospitalization)
  Sender: FDA-Public Use
  Company Number: DE-NOVARTISPH-NVSC2021DE247832

PATIENT
  Age: 71 Year
  Sex: Female
  Weight: 72 kg

DRUGS (19)
  1. BROLUCIZUMAB [Suspect]
     Active Substance: BROLUCIZUMAB
     Indication: Neovascular age-related macular degeneration
     Dosage: UNK
     Route: 031
     Dates: start: 20210105
  2. TORSEMIDE [Concomitant]
     Active Substance: TORSEMIDE
     Indication: Coronary artery disease
     Dosage: UNK
     Route: 065
     Dates: start: 2017
  3. ISOSORBIDE DINITRATE [Concomitant]
     Active Substance: ISOSORBIDE DINITRATE
     Indication: Coronary artery disease
     Dosage: UNK
     Route: 065
     Dates: start: 2017
  4. RANEXA [Concomitant]
     Active Substance: RANOLAZINE
     Indication: Coronary artery disease
     Dosage: UNK
     Route: 065
     Dates: start: 2018
  5. ELIQUIS [Concomitant]
     Active Substance: APIXABAN
     Indication: Coronary artery disease
     Dosage: UNK
     Route: 065
     Dates: start: 2018
  6. ACLIDINIUM BROMIDE\FORMOTEROL FUMARATE [Concomitant]
     Active Substance: ACLIDINIUM BROMIDE\FORMOTEROL FUMARATE
     Indication: Chronic obstructive pulmonary disease
     Dosage: UNK
     Route: 065
     Dates: start: 2018
  7. VENLAFAXINE HYDROCHLORIDE [Concomitant]
     Active Substance: VENLAFAXINE HYDROCHLORIDE
     Indication: Sleep disorder
     Dosage: UNK
     Route: 065
     Dates: start: 2019
  8. ATORVASTATIN [Concomitant]
     Active Substance: ATORVASTATIN
     Indication: Hyperlipidaemia
     Dosage: UNK, ABZ
     Route: 065
     Dates: start: 2019
  9. EZETIMIBE [Concomitant]
     Active Substance: EZETIMIBE
     Indication: Hyperlipidaemia
     Dosage: UNK
     Route: 065
     Dates: start: 20210806
  10. DEXPANTHENOL [Concomitant]
     Active Substance: DEXPANTHENOL
     Indication: Injection site pain
     Dosage: UNK
     Route: 065
     Dates: start: 20210708
  11. HYALURONATE SODIUM [Concomitant]
     Active Substance: HYALURONATE SODIUM
     Indication: Injection site pain
     Dosage: UNK
     Route: 065
     Dates: start: 20210708
  12. EUTHYROX [Concomitant]
     Active Substance: LEVOTHYROXINE SODIUM
     Indication: Hypothyroidism
     Dosage: UNK
     Route: 065
     Dates: start: 2006
  13. TRIMIPRAMINE [Concomitant]
     Active Substance: TRIMIPRAMINE
     Indication: Sleep disorder
     Dosage: UNK
     Route: 065
     Dates: start: 2000
  14. CLOPIDOGREL [Concomitant]
     Active Substance: CLOPIDOGREL BISULFATE
     Indication: Peripheral arterial occlusive disease
     Dosage: UNK, ABZ
     Route: 065
     Dates: start: 2018
  15. BISOPROLOL [Concomitant]
     Active Substance: BISOPROLOL
     Indication: Hypertension
     Dosage: UNK
     Route: 065
     Dates: start: 2000
  16. SIMVASTATIN [Concomitant]
     Active Substance: SIMVASTATIN
     Indication: Hyperlipidaemia
     Dosage: UNK, ABZ
     Route: 065
     Dates: start: 2018
  17. PANTOPRAZOLE [Concomitant]
     Active Substance: PANTOPRAZOLE
     Indication: Prophylaxis
     Dosage: UNK
     Route: 065
     Dates: start: 2005
  18. DICLOFENAC [Concomitant]
     Active Substance: DICLOFENAC
     Indication: Sciatica
     Dosage: UNK 75 ID
     Route: 065
     Dates: start: 2005
  19. OXYCODONE [Concomitant]
     Active Substance: OXYCODONE
     Indication: Sciatica
     Dosage: UNK, COMP ABZ
     Route: 065
     Dates: start: 2014

REACTIONS (1)
  - Coronary artery disease [Recovered/Resolved]

NARRATIVE: CASE EVENT DATE: 20210923
